FAERS Safety Report 5707330-1 (Version None)
Quarter: 2008Q2

REPORT INFORMATION
  Report Type: 
  Country: None (occurrence: None)
  Receive Date: 20080416
  Receipt Date: 20080229
  Transmission Date: 20081010
  Serious: Yes (Hospitalization)
  Sender: FDA-Public Use
  Company Number: US-ROCHE-557759

PATIENT
  Sex: Female
  Weight: 69 kg

DRUGS (15)
  1. MYCOPHENOLATE MOFETIL [Suspect]
     Indication: PROPHYLAXIS
     Dosage: TEMPORARILY DISCONTINUED
     Route: 065
  2. GENGRAF [Concomitant]
     Route: 048
     Dates: start: 20050708, end: 20080128
  3. GENGRAF [Concomitant]
     Dosage: REPORTED AS QPM
     Route: 048
     Dates: start: 20080129, end: 20080229
  4. GENGRAF [Concomitant]
     Dosage: 50MG IN THE MORNING 25MG IN THE EVENING
     Route: 048
     Dates: start: 20080130, end: 20080209
  5. ASPIRIN [Concomitant]
     Dosage: FREQUENCY REPORTED AS QDAY
     Route: 048
     Dates: start: 20040901
  6. METOPROLOL TARTRATE [Concomitant]
     Route: 048
     Dates: start: 20040901
  7. MAGNESIUM OXIDE [Concomitant]
     Route: 048
     Dates: start: 20050301
  8. ZOLOFT [Concomitant]
     Dosage: FREQUENCY REPORTED AS QDAY
     Route: 048
     Dates: start: 20041101
  9. INSULIN [Concomitant]
     Route: 058
     Dates: start: 20040901
  10. MULTI-VITAMIN [Concomitant]
     Route: 048
     Dates: start: 20050901
  11. LISINOPRIL [Concomitant]
     Dosage: FREQUENCY REPORTED AS QDAY
     Route: 048
     Dates: start: 20060101
  12. CALCIUM/VITAMIN D [Concomitant]
     Dosage: DRUG REPORTED AS CALCIUM+D
     Route: 048
     Dates: start: 20060101
  13. CALCIUM/VITAMIN D [Concomitant]
     Dosage: DRUG REPORTED AS CALCIUM+D
     Route: 048
     Dates: start: 20060101
  14. LIDODERM [Concomitant]
     Route: 061
     Dates: start: 20070701
  15. OXYCODONE HCL [Concomitant]
     Route: 048
     Dates: start: 20071101

REACTIONS (3)
  - DEHYDRATION [None]
  - DIZZINESS [None]
  - RENAL FAILURE ACUTE [None]
